FAERS Safety Report 5044322-2 (Version None)
Quarter: 2006Q3

REPORT INFORMATION
  Report Type: 
  Country: None (occurrence: None)
  Receive Date: 20060706
  Receipt Date: 20060630
  Transmission Date: 20061208
  Serious: Yes (Death)
  Sender: FDA-Public Use
  Company Number: 2006AC01224

PATIENT
  Age: 44 Year
  Sex: Male

DRUGS (3)
  1. CRESTOR [Suspect]
     Route: 048
     Dates: start: 20030825
  2. AVANDIA [Concomitant]
  3. METFORMIN [Concomitant]

REACTIONS (1)
  - MYOCARDIAL INFARCTION [None]
